FAERS Safety Report 15934610 (Version 4)
Quarter: 2019Q2

REPORT INFORMATION
  Report Type: Spontaneous
  Country: US (occurrence: US)
  Receive Date: 20190207
  Receipt Date: 20190530
  Transmission Date: 20190711
  Serious: Yes (Other)
  Sender: FDA-Public Use
  Company Number: US-ASTRAZENECA-2019SE11973

PATIENT
  Age: 14659 Day
  Sex: Female
  Weight: 81.6 kg

DRUGS (30)
  1. RANITIDINE. [Concomitant]
     Active Substance: RANITIDINE
  2. SEROQUEL [Concomitant]
     Active Substance: QUETIAPINE FUMARATE
  3. AMLODIPINE [Concomitant]
     Active Substance: AMLODIPINE BESYLATE
  4. NIFEDIPINE. [Concomitant]
     Active Substance: NIFEDIPINE
  5. PROVENTIL [Concomitant]
     Active Substance: ALBUTEROL
  6. NEXIUM 24HR [Suspect]
     Active Substance: ESOMEPRAZOLE MAGNESIUM
     Route: 048
     Dates: start: 2003, end: 2014
  7. SYNTHROID [Concomitant]
     Active Substance: LEVOTHYROXINE SODIUM
  8. ZOFRAN [Concomitant]
     Active Substance: ONDANSETRON HYDROCHLORIDE
  9. SPIRONOLACTONE. [Concomitant]
     Active Substance: SPIRONOLACTONE
  10. ONDANSETRON [Concomitant]
     Active Substance: ONDANSETRON
  11. BISACODYL. [Concomitant]
     Active Substance: BISACODYL
  12. ATENOLOL. [Concomitant]
     Active Substance: ATENOLOL
  13. PRILOSEC OTC [Suspect]
     Active Substance: OMEPRAZOLE MAGNESIUM
     Route: 048
     Dates: start: 2003, end: 2014
  14. PREDNISONE. [Concomitant]
     Active Substance: PREDNISONE
  15. LISINOPRIL. [Concomitant]
     Active Substance: LISINOPRIL
  16. CYCLOSPORINE. [Concomitant]
     Active Substance: CYCLOSPORINE
  17. ZOLPIDEM [Concomitant]
     Active Substance: ZOLPIDEM\ZOLPIDEM TARTRATE
  18. EZETIMIBE. [Concomitant]
     Active Substance: EZETIMIBE
  19. COREG [Concomitant]
     Active Substance: CARVEDILOL
  20. EPIPEN [Concomitant]
     Active Substance: EPINEPHRINE
  21. FLUCONAZOLE. [Concomitant]
     Active Substance: FLUCONAZOLE
  22. LEVOTHYROXINE. [Concomitant]
     Active Substance: LEVOTHYROXINE
  23. QUETIAPINE. [Concomitant]
     Active Substance: QUETIAPINE
  24. CLONAZEPAM. [Concomitant]
     Active Substance: CLONAZEPAM
  25. ADDERALL [Concomitant]
     Active Substance: AMPHETAMINE ASPARTATE\AMPHETAMINE SULFATE\DEXTROAMPHETAMINE SACCHARATE\DEXTROAMPHETAMINE SULFATE
  26. NEXIUM 24HR [Suspect]
     Active Substance: ESOMEPRAZOLE MAGNESIUM
     Route: 048
     Dates: start: 2015
  27. PROMETHAZINE [Concomitant]
     Active Substance: PROMETHAZINE\PROMETHAZINE HYDROCHLORIDE
  28. PANTOPRAZOLE [Concomitant]
     Active Substance: PANTOPRAZOLE
  29. TYLENOL [Concomitant]
     Active Substance: ACETAMINOPHEN
  30. CYANOCOBALAMIN. [Concomitant]
     Active Substance: CYANOCOBALAMIN

REACTIONS (5)
  - Renal injury [Unknown]
  - Chronic kidney disease [Not Recovered/Not Resolved]
  - Nephrogenic anaemia [Unknown]
  - Renal disorder [Unknown]
  - Acute kidney injury [Unknown]

NARRATIVE: CASE EVENT DATE: 20131001
